FAERS Safety Report 24121001 (Version 1)
Quarter: 2024Q3

REPORT INFORMATION
  Report Type: Spontaneous
  Country: US (occurrence: US)
  Receive Date: 20240722
  Receipt Date: 20240722
  Transmission Date: 20241016
  Serious: No
  Sender: PFIZER
  Company Number: US-PFIZER INC-PV202400094157

PATIENT
  Age: 62 Year
  Sex: Female

DRUGS (1)
  1. TYGACIL [Suspect]
     Active Substance: TIGECYCLINE

REACTIONS (2)
  - Drug hypersensitivity [Unknown]
  - Mental status changes [Unknown]

NARRATIVE: CASE EVENT DATE: 20120101
